FAERS Safety Report 5357709-5 (Version None)
Quarter: 2007Q2

REPORT INFORMATION
  Report Type: 
  Country: None (occurrence: None)
  Receive Date: 20070614
  Receipt Date: 20070602
  Transmission Date: 20071010
  Serious: Yes (Other)
  Sender: FDA-Public Use
  Company Number: US-PFIZER INC-2007018690

PATIENT
  Age: 52 Year
  Sex: Male
  Weight: 79.4 kg

DRUGS (1)
  1. CHANTIX [Suspect]
     Dosage: FREQ:BID: EVERY DAY
     Route: 048
     Dates: start: 20070420, end: 20070423

REACTIONS (2)
  - AGEUSIA [None]
  - ANOSMIA [None]
